FAERS Safety Report 6816732-1 (Version None)
Quarter: 2010Q3

REPORT INFORMATION
  Report Type: 
  Country: None (occurrence: None)
  Receive Date: 20100706
  Receipt Date: 20100622
  Transmission Date: 20110219
  Serious: Yes (Hospitalization)
  Sender: FDA-Public Use
  Company Number: PHHY2010FR38498

PATIENT
  Sex: Female
  Weight: 58 kg

DRUGS (2)
  1. GLEEVEC [Suspect]
     Indication: CHRONIC MYELOID LEUKAEMIA
     Dosage: 400 MG, QD
     Dates: start: 20080515
  2. LEVOTHYROXINE SODIUM [Concomitant]

REACTIONS (5)
  - BLADDER DILATATION [None]
  - CATHETER PLACEMENT [None]
  - HYSTERECTOMY [None]
  - URINARY RETENTION [None]
  - UTERINE DISORDER [None]
